FAERS Safety Report 7519569-3 (Version None)
Quarter: 2011Q2

REPORT INFORMATION
  Report Type: 
  Country: None (occurrence: None)
  Receive Date: 20110602
  Receipt Date: 20110526
  Transmission Date: 20111010
  Serious: Yes (Hospitalization)
  Sender: FDA-Public Use
  Company Number: US-GILEAD-2011-0039709

PATIENT
  Sex: Male

DRUGS (3)
  1. LETAIRIS [Suspect]
     Indication: PULMONARY HYPERTENSION
     Route: 048
     Dates: start: 20110413
  2. LETAIRIS [Suspect]
     Indication: HEPATIC CIRRHOSIS
  3. REVATIO [Concomitant]

REACTIONS (1)
  - ABDOMINAL DISTENSION [None]
